FAERS Safety Report 16703324 (Version 1)
Quarter: 2019Q3

REPORT INFORMATION
  Report Type: Spontaneous
  Country: US (occurrence: US)
  Receive Date: 20190814
  Receipt Date: 20190814
  Transmission Date: 20191004
  Serious: No
  Sender: FDA-Public Use
  Company Number: US-ASTRAZENECA-2019SF05351

PATIENT
  Age: 72 Year
  Sex: Female
  Weight: 94.3 kg

DRUGS (1)
  1. SYMBICORT [Suspect]
     Active Substance: BUDESONIDE\FORMOTEROL FUMARATE DIHYDRATE
     Indication: ASTHMA
     Dosage: 160/4.5 MCG; TWO INHALATIONS TWICE DAILY
     Route: 055
     Dates: start: 201906, end: 20190717

REACTIONS (5)
  - Fatigue [Unknown]
  - Candida infection [Unknown]
  - Dry mouth [Unknown]
  - Product dose omission [Unknown]
  - Dysphonia [Unknown]

NARRATIVE: CASE EVENT DATE: 2019
